FAERS Safety Report 5149824-6 (Version None)
Quarter: 2006Q4

REPORT INFORMATION
  Report Type: 
  Country: None (occurrence: None)
  Receive Date: 20060918
  Receipt Date: 20060417
  Transmission Date: 20070319
  Serious: Yes (Other)
  Sender: FDA-Public Use
  Company Number: US-JNJFOC-20060305763

PATIENT
  Age: 54 Year
  Sex: Male
  Weight: 40.8237 kg

DRUGS (5)
  1. TOPAMAX [Suspect]
     Indication: MIGRAINE PROPHYLAXIS
     Dosage: 100 MG, 1 IN 1 DAY
     Dates: start: 20050101
  2. NEURONTIN [Concomitant]
  3. RELPAX ( ) ELETRIPTAN HYDROBROMIDE [Concomitant]
  4. AMITRIPTYLINE HCL [Concomitant]
  5. TRAMADOL HCL [Concomitant]

REACTIONS (6)
  - AMNESIA [None]
  - ASTHENIA [None]
  - FATIGUE [None]
  - LOSS OF CONSCIOUSNESS [None]
  - SOMNOLENCE [None]
  - WEIGHT ABNORMAL [None]
